FAERS Safety Report 25203135 (Version 1)
Quarter: 2025Q2

REPORT INFORMATION
  Report Type: Spontaneous
  Country: US (occurrence: None)
  Receive Date: 20250415
  Receipt Date: 20250415
  Transmission Date: 20250716
  Serious: Yes (Other)
  Sender: FDA-CTU
  Company Number: None

PATIENT
  Age: 45 Year
  Sex: Male
  Weight: 90 kg

DRUGS (4)
  1. GLYCOLIC ACID [Suspect]
     Active Substance: GLYCOLIC ACID
     Indication: Ingrown hair
     Route: 061
  2. VITAMIN D [Concomitant]
     Active Substance: VITAMIN D NOS
  3. UNSPECIFIED INGREDIENT [Concomitant]
     Active Substance: UNSPECIFIED INGREDIENT
  4. MEGA MEN ESSENTIALS ONE DAILY MULTI [Concomitant]

REACTIONS (2)
  - Application site reaction [None]
  - Vitiligo [None]

NARRATIVE: CASE EVENT DATE: 20240809
